FAERS Safety Report 7971196-X (Version None)
Quarter: 2011Q4

REPORT INFORMATION
  Report Type: 
  Country: None (occurrence: None)
  Receive Date: 20111122
  Receipt Date: 20110831
  Transmission Date: 20120403
  Serious: No
  Sender: FDA-Public Use
  Company Number: PHEH2011US01776

PATIENT
  Age: 37 Year
  Sex: Female
  Weight: 130 kg

DRUGS (4)
  1. ZOLOFT [Concomitant]
  2. LASIX [Concomitant]
  3. KLONOPIN [Concomitant]
  4. GILENYA [Suspect]
     Indication: MULTIPLE SCLEROSIS
     Dosage: 0.5 MG, QD, ORAL ; 0.5 MG, QD, ORAL
     Route: 048
     Dates: start: 20110712

REACTIONS (2)
  - OCULAR ICTERUS [None]
  - ABDOMINAL PAIN UPPER [None]
